FAERS Safety Report 14954550 (Version 2)
Quarter: 2018Q2

REPORT INFORMATION
  Report Type: Spontaneous
  Country: ES (occurrence: ES)
  Receive Date: 20180530
  Receipt Date: 20180608
  Transmission Date: 20180711
  Serious: Yes (Other)
  Sender: FDA-Public Use
  Company Number: ES-GILEAD-2018-0331456

PATIENT
  Age: 67 Year
  Sex: Male
  Weight: 78.6 kg

DRUGS (4)
  1. AMLODIPINE [Concomitant]
     Active Substance: AMLODIPINE BESYLATE
     Dosage: 10 MG, UNK
  2. TAMSULOSIN [Concomitant]
     Active Substance: TAMSULOSIN
  3. ADIRO [Concomitant]
     Active Substance: ASPIRIN
  4. VIREAD [Suspect]
     Active Substance: TENOFOVIR DISOPROXIL FUMARATE
     Indication: HEPATITIS B
     Dosage: UNK
     Route: 065
     Dates: start: 20170331, end: 20180518

REACTIONS (6)
  - Proteinuria [Unknown]
  - Hypophosphataemia [Unknown]
  - Kidney fibrosis [Unknown]
  - Renal tubular necrosis [Unknown]
  - Renal tubular disorder [Unknown]
  - Glycosuria [Unknown]
